FAERS Safety Report 8429926-9 (Version None)
Quarter: 2012Q2

REPORT INFORMATION
  Report Type: 
  Country: None (occurrence: None)
  Receive Date: 20120323
  Receipt Date: 20111223
  Transmission Date: 20120825
  Serious: Yes (Hospitalization)
  Sender: FDA-Public Use
  Company Number: 163-21880-11120703

PATIENT
  Age: 67 Year
  Sex: Female

DRUGS (6)
  1. ASPIRIN [Concomitant]
  2. LIPITOR [Concomitant]
  3. REVLIMID [Suspect]
     Indication: MULTIPLE MYELOMA
     Dosage: 15 MG, DAILY, PO
     Route: 048
     Dates: start: 20110824, end: 20110916
  4. ATENOLOL [Concomitant]
  5. TRAMADOL HCL [Concomitant]
  6. DECADRON [Concomitant]

REACTIONS (2)
  - DEEP VEIN THROMBOSIS [None]
  - ANAEMIA [None]
